FAERS Safety Report 4774369-2 (Version None)
Quarter: 2005Q3

REPORT INFORMATION
  Report Type: 
  Country: None (occurrence: None)
  Receive Date: 20050914
  Receipt Date: 20050401
  Transmission Date: 20060218
  Serious: Yes (Hospitalization, Other)
  Sender: FDA-Public Use
  Company Number: 163-20785-05040051

PATIENT
  Age: 48 Year
  Sex: Female
  Weight: 54 kg

DRUGS (13)
  1. THALOMID [Suspect]
     Indication: MULTIPLE MYELOMA
     Dosage: 200 MG, QD, ORAL; 50 MG, QD, ORAL
     Route: 048
     Dates: start: 20041127, end: 20041130
  2. THALOMID [Suspect]
     Indication: MULTIPLE MYELOMA
     Dosage: 200 MG, QD, ORAL; 50 MG, QD, ORAL
     Route: 048
     Dates: start: 20041215, end: 20041221
  3. VELCADE [Suspect]
     Indication: MULTIPLE MYELOMA
     Dosage: 1.5 MG, INTRAVENOUS
     Route: 042
     Dates: start: 20041124, end: 20041124
  4. VELCADE [Suspect]
     Indication: MULTIPLE MYELOMA
     Dosage: 1.5 MG, INTRAVENOUS
     Route: 042
     Dates: start: 20041127, end: 20041127
  5. VELCADE [Suspect]
     Indication: MULTIPLE MYELOMA
     Dosage: 1.5 MG, INTRAVENOUS
     Route: 042
     Dates: start: 20041201, end: 20041201
  6. VELCADE [Suspect]
     Indication: MULTIPLE MYELOMA
     Dosage: 1.5 MG, INTRAVENOUS
     Route: 042
     Dates: start: 20041204, end: 20041204
  7. DEXAMETHASONE [Suspect]
     Indication: MULTIPLE MYELOMA
     Dosage: 40 MG, QD, ORAL; 20 MG, QD, ORAL
     Route: 048
     Dates: start: 20041127, end: 20041130
  8. DEXAMETHASONE [Suspect]
     Indication: MULTIPLE MYELOMA
     Dosage: 40 MG, QD, ORAL; 20 MG, QD, ORAL
     Route: 048
     Dates: start: 20041215, end: 20041218
  9. CISPLATIN [Suspect]
     Indication: MULTIPLE MYELOMA
     Dosage: 15 MG
     Dates: start: 20041127, end: 20041130
  10. ADRIAMYCIN PFS [Suspect]
     Indication: MULTIPLE MYELOMA
     Dosage: 15 MG
     Dates: start: 20041127, end: 20041130
  11. CYCLOPHOSPHAMIDE [Suspect]
     Indication: MULTIPLE MYELOMA
     Dosage: 580 MG
     Dates: start: 20041127, end: 20041130
  12. ETOPOSIDE [Suspect]
     Indication: MULTIPLE MYELOMA
     Dosage: 58 MG
     Dates: start: 20041127, end: 20041130
  13. G-CSF (GRANULOCYTE COLONY STIMULATING FACTOR) [Concomitant]

REACTIONS (4)
  - BACTERAEMIA [None]
  - FEBRILE NEUTROPENIA [None]
  - KLEBSIELLA INFECTION [None]
  - PANCYTOPENIA [None]
